FAERS Safety Report 7050983-9 (Version None)
Quarter: 2010Q4

REPORT INFORMATION
  Report Type: 
  Country: None (occurrence: None)
  Receive Date: 20101019
  Receipt Date: 20101008
  Transmission Date: 20110411
  Serious: Yes (Death, Other)
  Sender: FDA-Public Use
  Company Number: RO-GENZYME-CAMP-1001053

PATIENT
  Sex: Female
  Weight: 57 kg

DRUGS (3)
  1. CAMPATH [Suspect]
     Indication: CHRONIC LYMPHOCYTIC LEUKAEMIA
     Dosage: 30 MG, TIW
     Route: 065
     Dates: start: 20100525, end: 20100712
  2. CAMPATH [Suspect]
     Dosage: 30 MG, TIW
     Route: 065
     Dates: start: 20100826
  3. VALGANCICLOVIR HCL [Concomitant]
     Indication: CYTOMEGALOVIRUS INFECTION
     Dosage: 500 MG, QD
     Dates: start: 20100909, end: 20100916

REACTIONS (8)
  - CARDIOPULMONARY FAILURE [None]
  - DEATH [None]
  - LEUKOPENIA [None]
  - MULTI-ORGAN FAILURE [None]
  - NEUTROPENIA [None]
  - PYREXIA [None]
  - SEPSIS [None]
  - THROMBOCYTOPENIA [None]
